FAERS Safety Report 4372181-X (Version None)
Quarter: 2004Q2

REPORT INFORMATION
  Report Type: 
  Country: None (occurrence: None)
  Receive Date: 20040607
  Receipt Date: 20040521
  Transmission Date: 20050107
  Serious: Yes (Other)
  Sender: FDA-Public Use
  Company Number: 2004JP000995

PATIENT
  Age: 72 Year
  Sex: Female

DRUGS (5)
  1. CEFAZOLIN [Suspect]
     Indication: INFECTION PROPHYLAXIS
     Dosage: 1G PER DAY
     Route: 042
     Dates: start: 20040402, end: 20040402
  2. CRAVIT [Concomitant]
  3. DICLOFENAC SODIUM [Concomitant]
  4. RINDERON [Concomitant]
  5. ANTIBIOTIC UNSPECIFIED [Concomitant]

REACTIONS (5)
  - BLOOD PRESSURE DECREASED [None]
  - DISCOMFORT [None]
  - NAUSEA [None]
  - PRURITUS GENERALISED [None]
  - URTICARIA [None]
